FAERS Safety Report 15883141 (Version 3)
Quarter: 2019Q2

REPORT INFORMATION
  Report Type: Spontaneous
  Country: US (occurrence: US)
  Receive Date: 20190129
  Receipt Date: 20190411
  Transmission Date: 20190711
  Serious: No
  Sender: FDA-Public Use
  Company Number: US-HTU-2018US018202

PATIENT
  Sex: Female

DRUGS (2)
  1. VALCHLOR [Suspect]
     Active Substance: MECHLORETHAMINE
     Indication: CUTANEOUS T-CELL LYMPHOMA
     Dosage: THIN FILM, DAILY
     Route: 061
     Dates: start: 20181210
  2. VALCHLOR [Suspect]
     Active Substance: MECHLORETHAMINE
     Dosage: UNK, 1/WEEK
     Route: 061

REACTIONS (7)
  - Application site pruritus [Unknown]
  - Blister [Unknown]
  - Dizziness [Unknown]
  - Impaired driving ability [Unknown]
  - Application site inflammation [Unknown]
  - Dry skin [Unknown]
  - Application site erythema [Unknown]
